FAERS Safety Report 5078830-5 (Version None)
Quarter: 2006Q3

REPORT INFORMATION
  Report Type: 
  Country: None (occurrence: None)
  Receive Date: 20060814
  Receipt Date: 20060427
  Transmission Date: 20061208
  Serious: Yes (Hospitalization, Other)
  Sender: FDA-Public Use
  Company Number: GB-ABBOTT-06P-167-0331835-00

PATIENT
  Age: 36 Year
  Sex: Female

DRUGS (1)
  1. ERYTHROMYCIN [Suspect]
     Indication: PREMATURE RUPTURE OF MEMBRANES
     Route: 048

REACTIONS (8)
  - CAESAREAN SECTION [None]
  - CLOSTRIDIUM DIFFICILE COLITIS [None]
  - DRUG EXPOSURE DURING PREGNANCY [None]
  - HYPOTENSION [None]
  - INFLUENZA LIKE ILLNESS [None]
  - PREMATURE RUPTURE OF MEMBRANES [None]
  - PSEUDOMEMBRANOUS COLITIS [None]
  - UMBILICAL CORD PROLAPSE [None]
